FAERS Safety Report 4351505-3 (Version None)
Quarter: 2004Q2

REPORT INFORMATION
  Report Type: 
  Country: None (occurrence: None)
  Receive Date: 20040428
  Receipt Date: 20040408
  Transmission Date: 20050107
  Serious: Yes (Other)
  Sender: FDA-Public Use
  Company Number: USA040464472

PATIENT
  Age: 59 Year
  Sex: Female

DRUGS (9)
  1. FORTEO [Suspect]
     Indication: DISEASE PROGRESSION
     Dates: start: 20031201
  2. FORTEO [Suspect]
     Indication: OSTEOARTHRITIS
     Dates: start: 20031201
  3. SYNTHROID [Concomitant]
  4. METHOTREXATE [Concomitant]
  5. LEXAPRO [Concomitant]
  6. ESTER-C (CALCIUM ASCORBATE) [Concomitant]
  7. CALCIUM [Concomitant]
  8. GLUCOSAMINE CHONDROITIN [Concomitant]
  9. VITAMIN E [Concomitant]

REACTIONS (6)
  - ANGER [None]
  - BONE PAIN [None]
  - DIFFICULTY IN WALKING [None]
  - HEADACHE [None]
  - PHARMACEUTICAL PRODUCT COMPLAINT [None]
  - SALIVARY HYPERSECRETION [None]
